FAERS Safety Report 7819350-1 (Version None)
Quarter: 2011Q4

REPORT INFORMATION
  Report Type: 
  Country: None (occurrence: None)
  Receive Date: 20111018
  Receipt Date: 20101013
  Transmission Date: 20120403
  Serious: No
  Sender: FDA-Public Use
  Company Number: US-ASTRAZENECA-2010SE48545

PATIENT
  Sex: Female

DRUGS (3)
  1. SYMBICORT [Suspect]
     Dosage: 80/4.5 MCG 1 PUFF QD
     Route: 055
  2. SYMBICORT [Suspect]
     Dosage: 160/4.5 MCG 1PUFF DAILY
     Route: 055
  3. NEXIUM [Suspect]
     Route: 048

REACTIONS (1)
  - HERPES ZOSTER [None]
